FAERS Safety Report 7917605-3 (Version None)
Quarter: 2011Q4

REPORT INFORMATION
  Report Type: 
  Country: None (occurrence: None)
  Receive Date: 20111116
  Receipt Date: 20111104
  Transmission Date: 20120403
  Serious: Yes (Disabling, Other)
  Sender: FDA-Public Use
  Company Number: US-BAYER-201031838NA

PATIENT
  Age: 21 Year
  Sex: Female

DRUGS (4)
  1. HYDROCODONE BITARTRATE AND ACETAMINOPHEN [Concomitant]
     Indication: PAIN
     Dosage: UNK
     Dates: start: 20090908
  2. CIPROFLOXACIN [Concomitant]
     Dosage: UNK
     Dates: start: 20090625
  3. YAZ [Suspect]
     Indication: PREMENSTRUAL SYNDROME
     Dosage: UNK
     Dates: start: 20081023, end: 20090924
  4. PERCOCET [Concomitant]
     Indication: PAIN

REACTIONS (12)
  - CONSTIPATION [None]
  - ANXIETY [None]
  - SCAR [None]
  - DYSPEPSIA [None]
  - GASTROINTESTINAL MOTILITY DISORDER [None]
  - DEPRESSION [None]
  - CHOLECYSTITIS ACUTE [None]
  - FLATULENCE [None]
  - CHOLECYSTITIS CHRONIC [None]
  - ABDOMINAL DISTENSION [None]
  - CHOLELITHIASIS [None]
  - GALLBLADDER INJURY [None]
